FAERS Safety Report 5324832-0 (Version None)
Quarter: 2007Q2

REPORT INFORMATION
  Report Type: 
  Country: None (occurrence: None)
  Receive Date: 20070515
  Receipt Date: 20070509
  Transmission Date: 20071010
  Serious: Yes (Death)
  Sender: FDA-Public Use
  Company Number: GB-JNJFOC-20070502268

PATIENT
  Sex: Male

DRUGS (2)
  1. PREZISTA [Suspect]
     Indication: HIV INFECTION
     Route: 048
  2. ANTIBIOTICS [Concomitant]
     Indication: DIARRHOEA
     Route: 065

REACTIONS (2)
  - DEATH [None]
  - DIARRHOEA [None]
